FAERS Safety Report 19173629 (Version 1)
Quarter: 2021Q2

REPORT INFORMATION
  Report Type: Spontaneous
  Country: NL (occurrence: NL)
  Receive Date: 20210423
  Receipt Date: 20210423
  Transmission Date: 20210717
  Serious: Yes (Death, Other)
  Sender: FDA-Public Use
  Company Number: NL-MYLANLABS-2021M1023965

PATIENT
  Sex: Female

DRUGS (6)
  1. PREDNISOLONE MYLAN [Suspect]
     Active Substance: PREDNISOLONE
     Indication: PRODUCT USED FOR UNKNOWN INDICATION
     Dosage: UNK
     Dates: start: 20191213
  2. OXYCODON [Suspect]
     Active Substance: OXYCODONE
     Indication: PAIN
     Dosage: UNK
     Dates: start: 20191213
  3. MORFINE [Suspect]
     Active Substance: MORPHINE
     Indication: PAIN
     Dosage: 20 MILLIGRAM, QD
     Route: 058
     Dates: start: 201912
  4. MOVICOLON [Suspect]
     Active Substance: POLYETHYLENE GLYCOL 3350\POTASSIUM CHLORIDE\SODIUM BICARBONATE\SODIUM CHLORIDE
     Indication: CONSTIPATION
     Dosage: UNK, PRN
  5. COLCHICINE MYLAN 0,5 MG, TABLETTEN [Suspect]
     Active Substance: COLCHICINE
     Indication: GOUT
     Dosage: 0.5 MILLIGRAM, TID
     Dates: start: 201911, end: 2019
  6. MORFINE [Suspect]
     Active Substance: MORPHINE
     Indication: PAIN
     Dosage: UNK, ONCE
     Dates: start: 20191214

REACTIONS (11)
  - Death [Fatal]
  - Defaecation disorder [Recovering/Resolving]
  - Feeling abnormal [Unknown]
  - Diarrhoea [Recovering/Resolving]
  - Asthenia [Not Recovered/Not Resolved]
  - Incorrect product administration duration [Unknown]
  - Diet refusal [Unknown]
  - Weight decreased [Unknown]
  - Dysphagia [Unknown]
  - General physical health deterioration [Not Recovered/Not Resolved]
  - Pain in extremity [Unknown]

NARRATIVE: CASE EVENT DATE: 201911
